FAERS Safety Report 9686858 (Version 1)
Quarter: 2013Q4

REPORT INFORMATION
  Report Type: Spontaneous
  Country: US (occurrence: US)
  Receive Date: 20131113
  Receipt Date: 20131113
  Transmission Date: 20140711
  Serious: Yes (Other)
  Sender: FDA-Public Use
  Company Number: US-B.I. PHARMACEUTICALS,INC./RIDGEFIELD-2013-BI-36441BP

PATIENT
  Sex: Female

DRUGS (3)
  1. SPIRIVA [Suspect]
     Indication: WHEEZING
     Dosage: 18 MCG
     Route: 055
  2. NIFEDIPINE [Concomitant]
     Indication: HYPERTENSION
     Dates: start: 2007
  3. LOSARTAN [Concomitant]
     Indication: HYPERTENSION
     Dates: start: 2010

REACTIONS (4)
  - Deafness bilateral [Not Recovered/Not Resolved]
  - Dry eye [Not Recovered/Not Resolved]
  - White blood cells urine positive [Not Recovered/Not Resolved]
  - Off label use [Not Recovered/Not Resolved]
